FAERS Safety Report 8312797-9 (Version None)
Quarter: 2012Q2

REPORT INFORMATION
  Report Type: 
  Country: None (occurrence: None)
  Receive Date: 20120426
  Receipt Date: 20120419
  Transmission Date: 20120825
  Serious: No
  Sender: FDA-Public Use
  Company Number: US-PFIZER INC-2012099850

PATIENT
  Age: 45 Year
  Sex: Female

DRUGS (2)
  1. LYRICA [Suspect]
     Indication: SPINAL CORD INJURY
     Dosage: 1 DF, 1X/DAY
  2. LYRICA [Suspect]
     Dosage: 1 DF, 2X/DAY

REACTIONS (3)
  - FATIGUE [None]
  - DISTURBANCE IN ATTENTION [None]
  - MALAISE [None]
